FAERS Safety Report 4363642-8 (Version None)
Quarter: 2004Q2

REPORT INFORMATION
  Report Type: 
  Country: None (occurrence: None)
  Receive Date: 20040524
  Receipt Date: 20040524
  Transmission Date: 20050107
  Serious: Yes (Death)
  Sender: FDA-Public Use
  Company Number: None

PATIENT
  Age: 86 Year
  Sex: Female
  Weight: 68 kg

DRUGS (2)
  1. REMERON [Suspect]
     Indication: DEPRESSION
     Dosage: 37.5 MG DAILY BUCCAL
     Route: 002
     Dates: start: 20031219, end: 20040112
  2. EFFEXOR XR [Suspect]
     Indication: DEPRESSION
     Dosage: 300 MG DAILY BUCCAL
     Route: 002
     Dates: start: 20031229, end: 20040112

REACTIONS (2)
  - ASTHENIA [None]
  - HEPATIC FAILURE [None]
